FAERS Safety Report 5708330-8 (Version None)
Quarter: 2008Q2

REPORT INFORMATION
  Report Type: 
  Country: None (occurrence: None)
  Receive Date: 20080417
  Receipt Date: 20080414
  Transmission Date: 20081010
  Serious: Yes (Hospitalization)
  Sender: FDA-Public Use
  Company Number: US-KINGPHARMUSA00001-K200800432

PATIENT

DRUGS (9)
  1. ALTACE [Suspect]
     Indication: CARDIAC FAILURE
     Dosage: 10 MG, QD
     Route: 048
     Dates: end: 20070831
  2. ALDACTONE [Suspect]
     Indication: CARDIAC FAILURE
     Dosage: 12.5 MG, QD
     Route: 048
     Dates: end: 20070831
  3. KARDEGIC                           /00002703/ [Concomitant]
     Indication: ISCHAEMIC CARDIOMYOPATHY
     Dosage: 75 MG, UNK
     Route: 048
  4. CARDENSIEL [Concomitant]
     Indication: CARDIAC FAILURE
     Dosage: 1.25 MG, UNK
     Route: 048
  5. LASILIX                            /00032601/ [Concomitant]
     Indication: CARDIAC FAILURE
     Dosage: 750 MG, UNK
     Route: 048
  6. CACIT VITAMINE D3                  /00944201/ [Concomitant]
     Dosage: 1.5 U, UNK
     Route: 048
  7. ATORVASTATIN CALCIUM [Concomitant]
     Dosage: 40 MG, QD
     Route: 048
     Dates: start: 20070822
  8. PREVISCAN                          /00789001/ [Concomitant]
     Indication: PULMONARY EMBOLISM
     Dosage: 10 MG, UNK
     Route: 048
  9. CYCLOPHOSPHAMIDE [Concomitant]
     Indication: GLOMERULONEPHRITIS
     Dosage: 100 MG, QD
     Route: 048

REACTIONS (6)
  - CARDIAC FAILURE [None]
  - CONFUSIONAL STATE [None]
  - DEHYDRATION [None]
  - GENERAL PHYSICAL CONDITION ABNORMAL [None]
  - HYPERKALAEMIA [None]
  - RENAL FAILURE [None]
